FAERS Safety Report 13910366 (Version 1)
Quarter: 2017Q3

REPORT INFORMATION
  Report Type: Spontaneous
  Country: RU (occurrence: RU)
  Receive Date: 20170828
  Receipt Date: 20170828
  Transmission Date: 20171127
  Serious: Yes (Hospitalization, Other)
  Sender: FDA-Public Use
  Company Number: RU-BAYER-2017-157553

PATIENT
  Age: 30 Year
  Sex: Female

DRUGS (6)
  1. MIRENA [Suspect]
     Active Substance: LEVONORGESTREL
     Indication: UTERINE LEIOMYOMA
  2. YARINA [Suspect]
     Active Substance: DROSPIRENONE\ETHINYL ESTRADIOL
     Indication: ADENOMYOSIS
     Dosage: UNK
     Route: 048
  3. INDOMETHACIN. [Suspect]
     Active Substance: INDOMETHACIN
     Indication: GENITAL HAEMORRHAGE
  4. INDOMETHACIN. [Suspect]
     Active Substance: INDOMETHACIN
     Indication: ABDOMINAL PAIN LOWER
     Dosage: UNK
     Dates: start: 201708
  5. MIRENA [Suspect]
     Active Substance: LEVONORGESTREL
     Indication: ADENOMYOSIS
     Dosage: 20 MCG/24HR, CONT
     Route: 015
     Dates: start: 20170802
  6. YARINA [Suspect]
     Active Substance: DROSPIRENONE\ETHINYL ESTRADIOL
     Indication: GENITAL HAEMORRHAGE

REACTIONS (18)
  - Vaginal haemorrhage [None]
  - Cerebrovascular disorder [None]
  - Abdominal pain lower [None]
  - Speech disorder [None]
  - Procedural pain [None]
  - Nausea [None]
  - Hypoaesthesia [None]
  - Off label use of device [None]
  - Tongue movement disturbance [None]
  - Asthenia [None]
  - Product use in unapproved indication [None]
  - Loss of consciousness [None]
  - Genital haemorrhage [None]
  - Feeling abnormal [None]
  - Dizziness [None]
  - Feeling cold [None]
  - Presyncope [None]
  - Device use issue [None]

NARRATIVE: CASE EVENT DATE: 201708
